FAERS Safety Report 8117118-2 (Version None)
Quarter: 2011Q4

REPORT INFORMATION
  Report Type: 
  Country: None (occurrence: None)
  Receive Date: 20111227
  Receipt Date: 20110125
  Transmission Date: 20120403
  Serious: Yes (Death, Hospitalization)
  Sender: FDA-Public Use
  Company Number: PHHY2011US05554

PATIENT
  Age: 53 Year
  Sex: Female
  Weight: 68 kg

DRUGS (4)
  1. FEMARA [Suspect]
     Indication: METASTASES TO BONE
     Dosage: 2.5 MG, QD, ORAL
     Route: 048
     Dates: start: 20080101, end: 20091219
  2. CHEMOTHERAPEUTICS NOS (NO INGREDIENTS/SUBSTANCES) [Concomitant]
  3. ZOMETA [Suspect]
     Indication: METASTASES TO BONE
  4. RADIATION (NO INGREDIENTS/SUBSTANCES) [Concomitant]

REACTIONS (2)
  - NEOPLASM MALIGNANT [None]
  - BREAST CANCER [None]
